FAERS Safety Report 24037152 (Version 2)
Quarter: 2024Q3

REPORT INFORMATION
  Report Type: Spontaneous
  Country: US (occurrence: US)
  Receive Date: 20240701
  Receipt Date: 20240723
  Transmission Date: 20241017
  Serious: Yes (Hospitalization, Other)
  Sender: MERCK
  Company Number: US-009507513-2406USA010054

PATIENT
  Sex: Female
  Weight: 96 kg

DRUGS (27)
  1. KEYTRUDA [Suspect]
     Active Substance: PEMBROLIZUMAB
     Indication: Endometrial cancer stage IV
     Dosage: 200 MILLIGRAM, Q3W
     Dates: start: 20230908, end: 20231227
  2. KEYTRUDA [Suspect]
     Active Substance: PEMBROLIZUMAB
     Dosage: UNK UNK, EVERY 6 WEEKS
     Dates: start: 20240209, end: 20240210
  3. CARBOPLATIN [Suspect]
     Active Substance: CARBOPLATIN
     Indication: Endometrial cancer stage IV
  4. TAXOL [Suspect]
     Active Substance: PACLITAXEL
     Indication: Endometrial cancer stage IV
  5. ACETAMINOPHEN [Concomitant]
     Active Substance: ACETAMINOPHEN
     Dosage: 650 MILLIGRAM, 2 TABS BY MOUTH EVERY 4 HOURS
     Route: 048
  6. BUPROPION [Concomitant]
     Active Substance: BUPROPION
     Dosage: 300 MILLIGRAM, 1 TAB BY MOUTH AT BEDTIME
     Route: 048
  7. ESCITALOPRAM [Concomitant]
     Active Substance: ESCITALOPRAM OXALATE
     Indication: Generalised anxiety disorder
     Dosage: 20 MILLIGRAM,  TAB BY MOUTH AT BEDT?ME
  8. ESCITALOPRAM [Concomitant]
     Active Substance: ESCITALOPRAM OXALATE
     Indication: Major depression
  9. FLUTICASONE [Concomitant]
     Active Substance: FLUTICASONE
     Indication: Nasal congestion
     Dosage: SO MCG/ACT, 1 SPRAY BY NOSTRIL DAILY AS NEEDED
  10. FLUTICASONE [Concomitant]
     Active Substance: FLUTICASONE
     Indication: Hypersensitivity
  11. GABAPENTIN [Concomitant]
     Active Substance: GABAPENTIN
     Dosage: 300 MILLIGRAM, 1 CAP BY MOUTH 3 TIMES DA,LY
     Route: 048
  12. IBUPROFEN SODIUM [Concomitant]
     Active Substance: IBUPROFEN SODIUM
     Indication: Pain
     Dosage: 400 MILLIGRAM, 1 TAB BY RNOUTH EVERY 6 HOURS AS NEEDED FOR PAIN
  13. LOSARTAN [Concomitant]
     Active Substance: LOSARTAN
     Indication: Hypertension
     Dosage: 25 MILLIGRAM, QD
     Route: 048
  14. MELATONIN [Concomitant]
     Active Substance: MELATONIN
     Indication: Sleep disorder
     Dosage: 3 MILLIGRAM, BID
  15. TRAZODONE [Concomitant]
     Active Substance: TRAZODONE HYDROCHLORIDE
     Indication: Sleep disorder
     Dosage: 150 MILLIGRAM, HS
  16. AZELAIC ACID [Concomitant]
     Active Substance: AZELAIC ACID
  17. CLOBETASOL PROPIONATE [Concomitant]
     Active Substance: CLOBETASOL PROPIONATE
  18. LORAZEPAM [Concomitant]
     Active Substance: LORAZEPAM
  19. METRONIDAZOLE [Concomitant]
     Active Substance: METRONIDAZOLE
  20. PROCHLORPERAZINE [Concomitant]
     Active Substance: PROCHLORPERAZINE
  21. TRIAMCINOLONE [Concomitant]
     Active Substance: TRIAMCINOLONE
     Dosage: 55 MCG/ ACT AERO NASAL INHALER
  22. WELLBUTRIN [Concomitant]
     Active Substance: BUPROPION HYDROCHLORIDE
     Indication: Anxiety
  23. WELLBUTRIN [Concomitant]
     Active Substance: BUPROPION HYDROCHLORIDE
     Indication: Depression
  24. LEXAPRO [Concomitant]
     Active Substance: ESCITALOPRAM OXALATE
     Indication: Anxiety
  25. LEXAPRO [Concomitant]
     Active Substance: ESCITALOPRAM OXALATE
     Indication: Depression
  26. DICLOFENAC DIETHYLAMINE [Concomitant]
     Active Substance: DICLOFENAC DIETHYLAMINE
     Indication: Pain
     Dosage: UNK, PRN
  27. DESYREL [Concomitant]
     Active Substance: TRAZODONE HYDROCHLORIDE
     Dosage: 50 MILLIGRAM
     Route: 048

REACTIONS (2)
  - Guillain-Barre syndrome [Not Recovered/Not Resolved]
  - Insurance issue [Unknown]

NARRATIVE: CASE EVENT DATE: 20240101
